FAERS Safety Report 4882322-3 (Version None)
Quarter: 2005Q4

REPORT INFORMATION
  Report Type: 
  Country: None (occurrence: None)
  Receive Date: 20051223
  Receipt Date: 20050907
  Transmission Date: 20060501
  Serious: No
  Sender: FDA-Public Use
  Company Number: 05P-163-0310422-00

PATIENT
  Age: 78 Year
  Sex: Female
  Weight: 62.5964 kg

DRUGS (6)
  1. HUMIRA [Suspect]
     Indication: RHEUMATOID ARTHRITIS
     Dosage: 40 MG, 1 IN 2 WK, SUBCUTANEOUS ; 40 MG, 1 IN 1 WK, SUBCUTANEOUS
     Route: 058
     Dates: start: 20050701, end: 20050902
  2. HUMIRA [Suspect]
     Indication: RHEUMATOID ARTHRITIS
     Dosage: 40 MG, 1 IN 2 WK, SUBCUTANEOUS ; 40 MG, 1 IN 1 WK, SUBCUTANEOUS
     Route: 058
     Dates: start: 20050902
  3. GLYBENCLAMIDE [Concomitant]
  4. ASPIRIN [Concomitant]
  5. FUROSEMIDE [Concomitant]
  6. MAGNESIUM HYDROXIDE TAB [Concomitant]

REACTIONS (3)
  - PAIN [None]
  - RASH [None]
  - SWELLING [None]
